FAERS Safety Report 18581511 (Version 5)
Quarter: 2024Q2

REPORT INFORMATION
  Report Type: Report from Study
  Country: CA (occurrence: CA)
  Receive Date: 20201204
  Receipt Date: 20240624
  Transmission Date: 20240716
  Serious: Yes (Hospitalization)
  Sender: FDA-Public Use
  Company Number: CA-TAKEDA-2020TUS053486

PATIENT
  Age: 66 Year
  Sex: Male

DRUGS (4)
  1. HUMAN IMMUNOGLOBULIN G [Suspect]
     Active Substance: HUMAN IMMUNOGLOBULIN G
     Indication: Secondary immunodeficiency
     Dosage: 35 GRAM, 1/WEEK
     Route: 058
     Dates: start: 20180417, end: 2021
  2. Reactine [Concomitant]
     Dosage: 20 MILLIGRAM
     Route: 065
  3. OCUVITE [Concomitant]
     Active Substance: VITAMINS
     Dosage: UNK
     Route: 065
  4. HIZENTRA [Concomitant]
     Active Substance: HUMAN IMMUNOGLOBULIN G
     Dosage: 15 GRAM, 2/WEEK
     Route: 065

REACTIONS (3)
  - Post procedural diarrhoea [Recovered/Resolved with Sequelae]
  - Abdominal pain upper [Recovered/Resolved with Sequelae]
  - Product use complaint [Unknown]

NARRATIVE: CASE EVENT DATE: 20200501
